FAERS Safety Report 11890208 (Version 2)
Quarter: 2016Q1

REPORT INFORMATION
  Report Type: Spontaneous
  Country: US (occurrence: US)
  Receive Date: 20160105
  Receipt Date: 20160229
  Transmission Date: 20160526
  Serious: Yes (Hospitalization, Other)
  Sender: FDA-Public Use
  Company Number: US-BRISTOL-MYERS SQUIBB COMPANY-BMS-2015-092176

PATIENT
  Sex: Female
  Weight: 88.44 kg

DRUGS (2)
  1. ELIQUIS [Suspect]
     Active Substance: APIXABAN
     Dosage: 1 TAB, QD
     Route: 065
  2. ELIQUIS [Suspect]
     Active Substance: APIXABAN
     Indication: CEREBROVASCULAR ACCIDENT PROPHYLAXIS
     Dosage: 5 MG, BID
     Route: 065

REACTIONS (6)
  - White blood cell count increased [Unknown]
  - Platelet count decreased [Unknown]
  - Vomiting [Unknown]
  - Internal haemorrhage [Unknown]
  - Constipation [Unknown]
  - Diarrhoea [Unknown]
